FAERS Safety Report 6166177-5 (Version None)
Quarter: 2009Q2

REPORT INFORMATION
  Report Type: 
  Country: None (occurrence: None)
  Receive Date: 20090424
  Receipt Date: 20090416
  Transmission Date: 20091009
  Serious: Yes (Hospitalization)
  Sender: FDA-Public Use
  Company Number: US-BIOGENIDEC-2005BI000786

PATIENT
  Age: 43 Year
  Sex: Female

DRUGS (36)
  1. AVONEX [Suspect]
     Indication: MULTIPLE SCLEROSIS
     Route: 030
     Dates: start: 20020521, end: 20030101
  2. AVONEX [Suspect]
     Route: 030
     Dates: start: 20030101, end: 20040601
  3. AVONEX [Suspect]
     Route: 030
     Dates: start: 20050119, end: 20081101
  4. POLYGAM [Concomitant]
     Indication: DRUG USE FOR UNKNOWN INDICATION
  5. ALLEGRA [Concomitant]
     Indication: DRUG USE FOR UNKNOWN INDICATION
  6. ALLEGRA D 24 HOUR [Concomitant]
     Indication: DRUG USE FOR UNKNOWN INDICATION
  7. BACLOFEN [Concomitant]
     Indication: DRUG USE FOR UNKNOWN INDICATION
  8. BETA CAROTINE [Concomitant]
     Indication: DRUG USE FOR UNKNOWN INDICATION
  9. BECONASE [Concomitant]
     Indication: DRUG USE FOR UNKNOWN INDICATION
  10. CLONIDINE [Concomitant]
     Indication: DRUG USE FOR UNKNOWN INDICATION
  11. CRESTOR [Concomitant]
     Indication: DRUG USE FOR UNKNOWN INDICATION
  12. CYCLOBENZAPRINE HCL [Concomitant]
     Indication: DRUG USE FOR UNKNOWN INDICATION
  13. GABITRIL [Concomitant]
     Indication: DRUG USE FOR UNKNOWN INDICATION
  14. GLUCOPHAGE [Concomitant]
     Indication: DRUG USE FOR UNKNOWN INDICATION
  15. ASPIRIN [Concomitant]
     Indication: DRUG USE FOR UNKNOWN INDICATION
  16. GAVISCON [Concomitant]
     Indication: DRUG USE FOR UNKNOWN INDICATION
  17. LISINOPRIL [Concomitant]
     Indication: DRUG USE FOR UNKNOWN INDICATION
  18. MAXALT-MLT [Concomitant]
     Indication: DRUG USE FOR UNKNOWN INDICATION
  19. MECLIZINE [Concomitant]
     Indication: DRUG USE FOR UNKNOWN INDICATION
  20. NEURONTIN [Concomitant]
     Indication: DRUG USE FOR UNKNOWN INDICATION
  21. PERCOCET [Concomitant]
     Indication: DRUG USE FOR UNKNOWN INDICATION
  22. PREMARIN [Concomitant]
     Indication: DRUG USE FOR UNKNOWN INDICATION
  23. PROTONIX [Concomitant]
     Indication: DRUG USE FOR UNKNOWN INDICATION
  24. PROVENTIL [Concomitant]
     Indication: DRUG USE FOR UNKNOWN INDICATION
  25. METHADOSE [Concomitant]
     Indication: DRUG USE FOR UNKNOWN INDICATION
  26. PROVIGIL [Concomitant]
     Indication: DRUG USE FOR UNKNOWN INDICATION
  27. SKELAXIN [Concomitant]
     Indication: DRUG USE FOR UNKNOWN INDICATION
  28. TOPZOL-XL [Concomitant]
     Indication: DRUG USE FOR UNKNOWN INDICATION
  29. WELLBUTRIN [Concomitant]
     Indication: DRUG USE FOR UNKNOWN INDICATION
  30. LEXAPRO [Concomitant]
     Indication: DRUG USE FOR UNKNOWN INDICATION
  31. CRESTOR [Concomitant]
  32. ANSAID [Concomitant]
     Indication: DRUG USE FOR UNKNOWN INDICATION
  33. RHINOCORT [Concomitant]
     Indication: DRUG USE FOR UNKNOWN INDICATION
  34. LIDOCAINE [Concomitant]
     Indication: DRUG USE FOR UNKNOWN INDICATION
  35. TYLENOL [Concomitant]
     Indication: DRUG USE FOR UNKNOWN INDICATION
  36. ZELNORM [Concomitant]
     Indication: DRUG USE FOR UNKNOWN INDICATION

REACTIONS (16)
  - ARTHROPATHY [None]
  - DIABETES MELLITUS [None]
  - DRUG INTOLERANCE [None]
  - FIBROMYALGIA [None]
  - HYPOAESTHESIA [None]
  - HYPOTHYROIDISM [None]
  - INTERVERTEBRAL DISC DEGENERATION [None]
  - JOINT RANGE OF MOTION DECREASED [None]
  - MENINGITIS ASEPTIC [None]
  - MIGRAINE [None]
  - MORTON'S NEUROMA [None]
  - OESOPHAGEAL SPASM [None]
  - OSCILLOPSIA [None]
  - PAIN [None]
  - URINARY RETENTION [None]
  - VOMITING [None]
